FAERS Safety Report 7633039-3 (Version None)
Quarter: 2011Q3

REPORT INFORMATION
  Report Type: 
  Country: None (occurrence: None)
  Receive Date: 20110725
  Receipt Date: 20110715
  Transmission Date: 20111222
  Serious: Yes (Other)
  Sender: FDA-Public Use
  Company Number: PHHY2011US38995

PATIENT
  Age: 67 Year
  Sex: Female

DRUGS (3)
  1. ZADITOR [Suspect]
     Indication: GLAUCOMA
     Dosage: 2 TIMES IN 5 DAYS, 1 DROP IN EACH EYE
  2. INHALATION [Concomitant]
  3. CHOLESTEROL MEDICATION [Concomitant]

REACTIONS (1)
  - INTRAOCULAR PRESSURE INCREASED [None]
